FAERS Safety Report 8707460 (Version 2)
Quarter: 2013Q4

REPORT INFORMATION
  Report Type: Spontaneous
  Country: US (occurrence: US)
  Receive Date: 20120804
  Receipt Date: 20131101
  Transmission Date: 20140711
  Serious: No
  Sender: FDA-Public Use
  Company Number: US-009507513-1207USA011522

PATIENT
  Sex: Female

DRUGS (3)
  1. SAPHRIS [Suspect]
     Indication: POST-TRAUMATIC STRESS DISORDER
  2. SAPHRIS [Suspect]
     Indication: BORDERLINE PERSONALITY DISORDER
  3. SUBOXONE [Concomitant]
     Indication: DRUG DEPENDENCE

REACTIONS (2)
  - Weight increased [Unknown]
  - Oedema [Unknown]
